FAERS Safety Report 12763231 (Version 1)
Quarter: 2016Q3

REPORT INFORMATION
  Report Type: Spontaneous
  Country: BR (occurrence: BR)
  Receive Date: 20160920
  Receipt Date: 20160920
  Transmission Date: 20161109
  Serious: Yes (Other)
  Sender: FDA-Public Use
  Company Number: BR-PFIZER INC-2016420022

PATIENT
  Sex: Male

DRUGS (3)
  1. FRONTAL SL [Suspect]
     Active Substance: ALPRAZOLAM
     Dosage: UNK
  2. FRONTAL XR [Suspect]
     Active Substance: ALPRAZOLAM
     Indication: SLEEP DISORDER
     Dosage: UNK
  3. FRONTAL [Suspect]
     Active Substance: ALPRAZOLAM
     Indication: SLEEP DISORDER
     Dosage: UNK

REACTIONS (5)
  - Drug effect variable [Unknown]
  - Arrhythmia [Not Recovered/Not Resolved]
  - Malaise [Not Recovered/Not Resolved]
  - Somnolence [Unknown]
  - Drug dependence [Unknown]

NARRATIVE: CASE EVENT DATE: 201609
